FAERS Safety Report 13850321 (Version 2)
Quarter: 2017Q3

REPORT INFORMATION
  Report Type: Spontaneous
  Country: FR (occurrence: FR)
  Receive Date: 20170809
  Receipt Date: 20170901
  Transmission Date: 20171127
  Serious: Yes (Other)
  Sender: FDA-Public Use
  Company Number: FR-AMGEN-FRASP2017117682

PATIENT
  Age: 79 Year
  Sex: Male

DRUGS (8)
  1. SPIRIVA [Concomitant]
     Active Substance: TIOTROPIUM BROMIDE MONOHYDRATE
     Dosage: 1 DF (18 MCG), QD
     Route: 055
     Dates: start: 2015
  2. PREVISCAN [Concomitant]
     Active Substance: FLUINDIONE
     Dosage: 20 MG, QD (WITH BREAK-BAR)
     Route: 048
     Dates: start: 2015
  3. VENTOLINE [Concomitant]
     Active Substance: ALBUTEROL
     Dosage: UNK, AS NECESSARY
     Route: 055
     Dates: start: 2015
  4. PANTOPRAZOLE [Concomitant]
     Active Substance: PANTOPRAZOLE
     Dosage: 40 MG, QD
     Route: 048
     Dates: start: 2015
  5. XGEVA [Suspect]
     Active Substance: DENOSUMAB
     Indication: METASTASES TO BONE
     Dosage: 120 MG, QMO
     Route: 042
     Dates: start: 201502, end: 201608
  6. SERETIDE [Concomitant]
     Active Substance: FLUTICASONE PROPIONATE\SALMETEROL XINAFOATE
     Dosage: 2 DF (250/25 MCG/DOSE), BID
     Route: 055
     Dates: start: 2015
  7. TADENAN [Concomitant]
     Active Substance: PYGEUM
     Dosage: 100 MG, TID
     Route: 048
     Dates: start: 2015
  8. OROCAL D3 [Concomitant]
     Active Substance: CALCIUM CARBONATE\CHOLECALCIFEROL
     Dosage: UNK
     Route: 048
     Dates: start: 2015

REACTIONS (1)
  - Osteonecrosis of jaw [Not Recovered/Not Resolved]

NARRATIVE: CASE EVENT DATE: 20170428
